FAERS Safety Report 4334371-1 (Version None)
Quarter: 2004Q1

REPORT INFORMATION
  Report Type: 
  Country: None (occurrence: None)
  Receive Date: 20040326
  Receipt Date: 20040105
  Transmission Date: 20041129
  Serious: No
  Sender: FDA-Public Use
  Company Number: US-JNJFOC-20031200436

PATIENT
  Age: 78 Year
  Sex: Male

DRUGS (5)
  1. REMINYL [Suspect]
     Indication: PARKINSON'S DISEASE
     Dosage: 4 MG, ORAL
     Route: 048
     Dates: start: 20031001
  2. SINEMET [Concomitant]
  3. SYMMETREL [Concomitant]
  4. NISOREX (NISOREX) [Concomitant]
  5. DITROPAN (OXYBUTYNIN) TABLETS [Concomitant]

REACTIONS (1)
  - UNEXPECTED THERAPEUTIC DRUG EFFECT [None]
